FAERS Safety Report 17258319 (Version 1)
Quarter: 2020Q1

REPORT INFORMATION
  Report Type: Spontaneous
  Country: US (occurrence: US)
  Receive Date: 20200110
  Receipt Date: 20200110
  Transmission Date: 20200409
  Serious: No
  Sender: FDA-Public Use
  Company Number: US-EPIC PHARMA LLC-2019EPC00060

PATIENT

DRUGS (7)
  1. BLACK COHOSH [Concomitant]
     Active Substance: BLACK COHOSH
     Dosage: 3 DOSAGE UNITS, 1X/DAY
     Dates: start: 2019
  2. VITAMINS [Concomitant]
     Active Substance: VITAMINS
  3. LEVOTHYROXINE. [Concomitant]
     Active Substance: LEVOTHYROXINE
  4. ESTRADIOL. [Suspect]
     Active Substance: ESTRADIOL
     Indication: HOT FLUSH
     Dosage: 0.5 MG, 1X/DAY
  5. FISH OIL [Concomitant]
     Active Substance: FISH OIL
  6. BIOTIN [Concomitant]
     Active Substance: BIOTIN
  7. CYSTEX [Concomitant]
     Active Substance: METHENAMINE\SODIUM SALICYLATE

REACTIONS (1)
  - Drug ineffective [Unknown]
